FAERS Safety Report 9167734 (Version 1)
Quarter: 2013Q1

REPORT INFORMATION
  Report Type: Spontaneous
  Country: BR (occurrence: BR)
  Receive Date: 20130318
  Receipt Date: 20130318
  Transmission Date: 20140127
  Serious: Yes (Other)
  Sender: FDA-Public Use
  Company Number: PHHY2013BR025212

PATIENT
  Sex: Female

DRUGS (2)
  1. EXELON PATCH [Suspect]
     Indication: DEPRESSION
     Dosage: 9 MG, DAILY (10 CM2)
     Route: 062
  2. DIOVAN [Suspect]
     Dosage: UNK

REACTIONS (2)
  - Memory impairment [Recovering/Resolving]
  - Depression [Recovering/Resolving]
